FAERS Safety Report 4524623-4 (Version None)
Quarter: 2004Q4

REPORT INFORMATION
  Report Type: 
  Country: None (occurrence: None)
  Receive Date: 20041117
  Receipt Date: 20040315
  Transmission Date: 20050328
  Serious: Yes (Other)
  Sender: FDA-Public Use
  Company Number: 2004S1000874

PATIENT
  Age: 32 Year
  Sex: 0

DRUGS (1)
  1. CLOZAPINE [Suspect]

REACTIONS (3)
  - BLOOD GLUCOSE INCREASED [None]
  - SEDATION [None]
  - WEIGHT INCREASED [None]
